FAERS Safety Report 21661069 (Version 2)
Quarter: 2023Q1

REPORT INFORMATION
  Report Type: Spontaneous
  Country: PL (occurrence: PL)
  Receive Date: 20221130
  Receipt Date: 20230118
  Transmission Date: 20230417
  Serious: Yes (Other)
  Sender: FDA-Public Use
  Company Number: PL-TEVA-2022-PL-2825085

PATIENT
  Age: 37 Year
  Sex: Female

DRUGS (4)
  1. BISOPROLOL [Suspect]
     Active Substance: BISOPROLOL
     Indication: Myocarditis
     Dosage: UNK
     Route: 065
     Dates: start: 2014
  2. EPLERENONE [Suspect]
     Active Substance: EPLERENONE
     Indication: Myocarditis
     Dosage: UNK
     Route: 065
     Dates: start: 2014
  3. METHYLDOPA [Concomitant]
     Active Substance: METHYLDOPA
     Indication: Product used for unknown indication
     Dosage: UNK
     Route: 065
  4. METOPROLOL [Concomitant]
     Active Substance: METOPROLOL
     Indication: Product used for unknown indication
     Dosage: 1 UNK
     Route: 065

REACTIONS (5)
  - Foetal death [Unknown]
  - Cardiomyopathy [Unknown]
  - Treatment noncompliance [Unknown]
  - Maternal exposure during pregnancy [Recovered/Resolved]
  - Product use issue [Unknown]

NARRATIVE: CASE EVENT DATE: 20140101
